FAERS Safety Report 5717817-3 (Version None)
Quarter: 2008Q2

REPORT INFORMATION
  Report Type: 
  Country: None (occurrence: None)
  Receive Date: 20080425
  Receipt Date: 20080418
  Transmission Date: 20081010
  Serious: Yes (Hospitalization)
  Sender: FDA-Public Use
  Company Number: FR-AVENTIS-200811483FR

PATIENT
  Age: 79 Year
  Sex: Female

DRUGS (15)
  1. LASIX [Suspect]
     Indication: HYPERTENSION
     Route: 048
     Dates: end: 20080207
  2. CO-RENITEC [Suspect]
     Indication: HYPERTENSION
     Route: 048
     Dates: end: 20080207
  3. IOMERON-150 [Concomitant]
     Indication: COMPUTERISED TOMOGRAM
     Route: 042
     Dates: start: 20080131, end: 20080131
  4. ARIXTRA [Concomitant]
     Indication: DRUG USE FOR UNKNOWN INDICATION
     Route: 042
     Dates: start: 20080131, end: 20080211
  5. KARDEGIC                           /00002703/ [Concomitant]
     Indication: PROPHYLAXIS
     Route: 048
     Dates: end: 20080204
  6. DIFFU-K [Concomitant]
     Indication: HYPOKALAEMIA
     Dosage: DOSE: 2-2-1
     Route: 048
     Dates: start: 20080202, end: 20080209
  7. INIPOMP                            /01263201/ [Concomitant]
     Indication: DRUG USE FOR UNKNOWN INDICATION
     Route: 048
  8. VASTAREL [Concomitant]
     Indication: DRUG USE FOR UNKNOWN INDICATION
     Route: 048
  9. DI-ANTALVIC                        /00220901/ [Concomitant]
     Indication: DRUG USE FOR UNKNOWN INDICATION
     Route: 048
  10. DOLIPRANE [Concomitant]
     Indication: DRUG USE FOR UNKNOWN INDICATION
     Route: 048
  11. COUMADIN [Concomitant]
     Indication: DRUG USE FOR UNKNOWN INDICATION
     Route: 048
  12. DRUGS AFFECTING MINERALIZATION [Concomitant]
     Indication: DRUG USE FOR UNKNOWN INDICATION
     Route: 048
  13. CORTANCYL [Concomitant]
     Indication: DRUG USE FOR UNKNOWN INDICATION
     Route: 048
  14. CALCIUM [Concomitant]
     Indication: DRUG USE FOR UNKNOWN INDICATION
     Route: 048
  15. DEDROGYL [Concomitant]
     Indication: DRUG USE FOR UNKNOWN INDICATION
     Route: 048

REACTIONS (8)
  - DEEP VEIN THROMBOSIS [None]
  - DRUG INTERACTION [None]
  - GENERAL PHYSICAL HEALTH DETERIORATION [None]
  - HYPOKALAEMIA [None]
  - INTERVERTEBRAL DISC COMPRESSION [None]
  - OSTEONECROSIS [None]
  - PULMONARY EMBOLISM [None]
  - RENAL FAILURE ACUTE [None]
